FAERS Safety Report 10589639 (Version 1)
Quarter: 2014Q4

REPORT INFORMATION
  Report Type: Report from Study
  Country: CN (occurrence: None)
  Receive Date: 20141114
  Receipt Date: 20141114
  Transmission Date: 20150529
  Serious: Yes (Hospitalization)
  Sender: FDA-Public Use
  Company Number: 2014CN010715

PATIENT
  Age: 76 Year
  Sex: Male

DRUGS (5)
  1. DEXAMETHASONE (DEXAMETHASONE) [Suspect]
     Active Substance: DEXAMETHASONE
     Indication: PROPHYLAXIS OF NAUSEA AND VOMITING
     Dosage: 12MG SINGLE, ORAL
     Route: 048
     Dates: start: 20141027, end: 20141027
  2. MUCOSOLVAN [Concomitant]
     Active Substance: AMBROXOL\CLENBUTEROL
  3. CISPLATIN. [Concomitant]
     Active Substance: CISPLATIN
  4. THYMOPENTIN [Concomitant]
     Active Substance: THYMOPENTIN
  5. NETUPITANT-PALONOSETRON COMBINATION CAPSULE [Suspect]
     Active Substance: NETUPITANT\PALONOSETRON HYDROCHLORIDE
     Indication: PROPHYLAXIS OF NAUSEA AND VOMITING
     Dosage: AS PER PROTOCOL
     Dates: start: 20141027

REACTIONS (8)
  - Cardiotoxicity [None]
  - Heart injury [None]
  - Blood creatine phosphokinase increased [None]
  - Arrhythmia [None]
  - Pulse abnormal [None]
  - Blood pressure systolic decreased [None]
  - Dizziness [None]
  - Atrial fibrillation [None]

NARRATIVE: CASE EVENT DATE: 20141102
